FAERS Safety Report 4852985-7 (Version None)
Quarter: 2005Q4

REPORT INFORMATION
  Report Type: 
  Country: None (occurrence: None)
  Receive Date: 20051212
  Receipt Date: 20051130
  Transmission Date: 20060501
  Serious: Yes (Disabling)
  Sender: FDA-Public Use
  Company Number: 2005JP002249

PATIENT
  Age: 21 Year
  Sex: Female
  Weight: 81.0124 kg

DRUGS (4)
  1. PROGRAF [Suspect]
     Indication: RENAL TRANSPLANT
     Dosage: 3 MG BID ORAL
     Route: 048
     Dates: start: 20030719
  2. AZATHIOPRINE [Concomitant]
  3. PREDNISONE [Concomitant]
  4. FOLATE SODIUM (FOLATE SODIUM) [Concomitant]

REACTIONS (7)
  - CAESAREAN SECTION [None]
  - DRUG EXPOSURE DURING PREGNANCY [None]
  - HYPERTENSION [None]
  - PRE-ECLAMPSIA [None]
  - PREGNANCY [None]
  - RENAL IMPAIRMENT [None]
  - URINARY TRACT INFECTION [None]
